FAERS Safety Report 5874357-9 (Version None)
Quarter: 2008Q3

REPORT INFORMATION
  Report Type: 
  Country: None (occurrence: None)
  Receive Date: 20080908
  Receipt Date: 20080829
  Transmission Date: 20090109
  Serious: Yes (Life-Threatening)
  Sender: FDA-Public Use
  Company Number: JP-MERCK-0807USA00351

PATIENT
  Age: 75 Year
  Sex: Male

DRUGS (10)
  1. PEPCID RPD [Suspect]
     Indication: PROPHYLAXIS AGAINST GASTROINTESTINAL ULCER
     Route: 048
     Dates: start: 20080612, end: 20080613
  2. PEPCID INJECTION [Suspect]
     Indication: PROPHYLAXIS AGAINST GASTROINTESTINAL ULCER
     Route: 042
     Dates: start: 20080610, end: 20080612
  3. PROPOFOL [Concomitant]
     Indication: SEDATION
     Route: 065
     Dates: start: 20080610, end: 20080616
  4. HERBESSER [Concomitant]
     Indication: HYPERTENSION
     Route: 065
     Dates: start: 20080610, end: 20080612
  5. FLUMARIN [Concomitant]
     Indication: PNEUMONIA
     Route: 065
     Dates: start: 20080610, end: 20080612
  6. ROCEPHIN [Concomitant]
     Indication: PNEUMONIA
     Route: 065
     Dates: start: 20080613, end: 20080613
  7. GENTAMICIN SULFATE [Concomitant]
     Indication: PNEUMONIA
     Route: 065
     Dates: start: 20080613, end: 20080615
  8. MEROPEN [Concomitant]
     Indication: PNEUMONIA
     Route: 065
     Dates: start: 20080613, end: 20080616
  9. GLYCEOL [Concomitant]
     Indication: SUBDURAL HAEMATOMA
     Route: 065
     Dates: start: 20080610, end: 20080612
  10. GLYCEOL [Concomitant]
     Route: 065
     Dates: start: 20080612, end: 20080612

REACTIONS (3)
  - ANURIA [None]
  - INTERSTITIAL LUNG DISEASE [None]
  - RHABDOMYOLYSIS [None]
